FAERS Safety Report 9882637 (Version 2)
Quarter: 2014Q1

REPORT INFORMATION
  Report Type: Spontaneous
  Country: GR (occurrence: GR)
  Receive Date: 20140207
  Receipt Date: 20140211
  Transmission Date: 20141002
  Serious: Yes (Hospitalization)
  Sender: FDA-Public Use
  Company Number: GR-MERCK-1402GRC003234

PATIENT
  Age: 2 Year
  Sex: Male
  Weight: 15 kg

DRUGS (1)
  1. AERIUS [Suspect]
     Dosage: 7 CC INSTEAD OF 2.5 CC
     Route: 048
     Dates: start: 20140204

REACTIONS (2)
  - Prescribed overdose [Unknown]
  - No adverse event [Unknown]
